FAERS Safety Report 6080564-5 (Version None)
Quarter: 2009Q1

REPORT INFORMATION
  Report Type: 
  Country: None (occurrence: None)
  Receive Date: 20090217
  Receipt Date: 20090213
  Transmission Date: 20090719
  Serious: Yes (Death)
  Sender: FDA-Public Use
  Company Number: B0556419A

PATIENT
  Age: 17 Year
  Sex: Male

DRUGS (4)
  1. RELENZA [Suspect]
     Indication: INFLUENZA
     Dosage: 10MG TWICE PER DAY
     Route: 055
     Dates: start: 20090126
  2. MUCODYNE [Concomitant]
     Dosage: 3G THREE TIMES PER DAY
     Route: 048
     Dates: start: 20090126
  3. UNKNOWN DRUG [Concomitant]
     Dosage: .5G THREE TIMES PER DAY
     Route: 048
     Dates: start: 20090126
  4. UNKNOWN DRUG [Concomitant]
     Indication: COUGH
     Dosage: 3G THREE TIMES PER DAY
     Route: 048
     Dates: start: 20090126

REACTIONS (2)
  - DEATH [None]
  - FALL [None]
